FAERS Safety Report 4886446-6 (Version None)
Quarter: 2006Q1

REPORT INFORMATION
  Report Type: 
  Country: None (occurrence: None)
  Receive Date: 20060120
  Receipt Date: 20051207
  Transmission Date: 20060701
  Serious: Yes (Hospitalization)
  Sender: FDA-Public Use
  Company Number: US-MERCK-0512USA00954

PATIENT
  Age: 54 Year
  Sex: Male
  Weight: 73 kg

DRUGS (8)
  1. VIOXX [Suspect]
     Indication: ARTHRITIS
     Route: 048
     Dates: start: 20030101, end: 20041001
  2. VIAGRA [Concomitant]
     Route: 065
  3. IBUPROFEN [Concomitant]
     Route: 065
  4. CITALOPRAM [Concomitant]
     Route: 065
  5. TRAZODONE HYDROCHLORIDE [Concomitant]
     Route: 065
  6. PROPOXYPHENE HYDROCHLORIDE [Concomitant]
     Route: 065
  7. BUSPIRONE HYDROCHLORIDE [Concomitant]
     Route: 065
  8. PERPHENAZINE [Concomitant]
     Route: 065

REACTIONS (3)
  - CARPAL TUNNEL SYNDROME [None]
  - HERNIA [None]
  - MYOCARDIAL INFARCTION [None]
